FAERS Safety Report 11289469 (Version 1)
Quarter: 2015Q3

REPORT INFORMATION
  Report Type: Spontaneous
  Country: US (occurrence: US)
  Receive Date: 20150721
  Receipt Date: 20150721
  Transmission Date: 20151125
  Serious: No
  Sender: FDA-Public Use
  Company Number: US-GALDERMA-US15000741

PATIENT
  Age: 64 Year
  Sex: Female

DRUGS (4)
  1. CETAPHIL DAILY FACIAL CLEANSER [Concomitant]
     Active Substance: COSMETICS
     Indication: THERAPEUTIC SKIN CARE TOPICAL
     Route: 061
  2. CERAVE MOISTURIZER WITH SUNSCREEN SPF 15 [Concomitant]
     Indication: PROPHYLAXIS AGAINST SOLAR RADIATION
  3. ORACEA [Suspect]
     Active Substance: DOXYCYCLINE
     Indication: ROSACEA
     Route: 048
  4. CERAVE MOISTURIZER WITH SUNSCREEN SPF 15 [Concomitant]
     Indication: DRY SKIN PROPHYLAXIS
     Route: 061

REACTIONS (3)
  - Rash papular [Not Recovered/Not Resolved]
  - Fungal infection [Not Recovered/Not Resolved]
  - Pruritus [Not Recovered/Not Resolved]

NARRATIVE: CASE EVENT DATE: 201501
